FAERS Safety Report 6547884 (Version 4)
Quarter: 2013Q2

REPORT INFORMATION
  Report Type: Spontaneous
  Country: US (occurrence: US)
  Receive Date: 20080128
  Receipt Date: 20130509
  Transmission Date: 20140414
  Serious: Yes (Hospitalization, Other)
  Sender: FDA-Public Use
  Company Number: 2008BI001364

PATIENT
  Age: 46 Year
  Sex: Male
  Weight: 108 kg

DRUGS (4)
  1. AVONEX [Suspect]
     Indication: MULTIPLE SCLEROSIS
     Route: 030
     Dates: start: 20020301, end: 2003
  2. AVONEX [Suspect]
     Indication: MULTIPLE SCLEROSIS
     Route: 030
     Dates: start: 2003, end: 200712
  3. AVONEX [Suspect]
     Indication: MULTIPLE SCLEROSIS
     Route: 030
     Dates: start: 200712, end: 201303
  4. LISINOPRIL [Concomitant]
     Indication: HYPERTENSION

REACTIONS (12)
  - Prolactinoma [Not Recovered/Not Resolved]
  - Cardiovascular disorder [Not Recovered/Not Resolved]
  - Chest pain [Unknown]
  - Heart rate irregular [Unknown]
  - Fear [Unknown]
  - Balance disorder [Recovered/Resolved]
  - Irritability [Recovered/Resolved]
  - Amnesia [Recovered/Resolved]
  - VIIth nerve paralysis [Recovered/Resolved]
  - Central nervous system lesion [Unknown]
  - Mobility decreased [Unknown]
  - Muscular weakness [Recovered/Resolved]
